FAERS Safety Report 7082241-0 (Version None)
Quarter: 2010Q4

REPORT INFORMATION
  Report Type: 
  Country: None (occurrence: None)
  Receive Date: 20101104
  Receipt Date: 20101021
  Transmission Date: 20110411
  Serious: Yes (Hospitalization, Other)
  Sender: FDA-Public Use
  Company Number: US-ELI_LILLY_AND_COMPANY-US201010007111

PATIENT
  Sex: Female
  Weight: 80.9 kg

DRUGS (13)
  1. PRASUGREL HYDROCHLORIDE [Suspect]
     Indication: ACUTE CORONARY SYNDROME
     Dosage: 60 MG, ONCE
     Dates: start: 20101018, end: 20101018
  2. PRASUGREL HYDROCHLORIDE [Suspect]
     Dosage: 30 MG, DAILY (1/D)
     Route: 048
     Dates: start: 20101019, end: 20101019
  3. PRASUGREL HYDROCHLORIDE [Suspect]
     Dosage: 10 MG, DAILY (1/D)
     Dates: start: 20101019
  4. ASPIRIN [Concomitant]
     Indication: ANTIPLATELET THERAPY
     Dosage: 81 MG, DAILY (1/D)
     Route: 048
     Dates: start: 20101016, end: 20101018
  5. ASPIRIN [Concomitant]
     Dosage: 325 MG, DAILY (1/D)
     Dates: start: 20101019
  6. COREG [Concomitant]
     Indication: HYPERTENSION
     Dosage: 3.125 MG, 2/D
     Route: 048
     Dates: start: 20101019, end: 20101019
  7. POTASSIUM CHLORIDE [Concomitant]
     Indication: HYPOKALAEMIA
     Dosage: 40 D/F, OTHER
     Route: 042
     Dates: start: 20101015, end: 20101015
  8. POTASSIUM CHLORIDE [Concomitant]
     Dosage: 40 D/F, DAILY (1/D)
     Route: 048
     Dates: start: 20101019, end: 20101019
  9. LIPITOR [Concomitant]
     Indication: HYPERLIPIDAEMIA
     Dosage: 80 MG, DAILY (1/D)
     Route: 048
     Dates: start: 20101019
  10. LOPRESSOR [Concomitant]
     Indication: HYPERTENSION
     Dosage: 12.5 MG, 2/D
     Route: 048
     Dates: start: 20101018, end: 20101018
  11. MORPHINE [Concomitant]
     Indication: PAIN
     Dosage: 0.5 MG, AS NEEDED
     Route: 042
     Dates: start: 20101016, end: 20101016
  12. MORPHINE [Concomitant]
     Dosage: 1 MG, AS NEEDED
     Route: 042
     Dates: start: 20101016, end: 20101016
  13. MORPHINE [Concomitant]
     Dosage: 2 MG, AS NEEDED
     Route: 042
     Dates: start: 20101016, end: 20101018

REACTIONS (1)
  - CORONARY ARTERY STENOSIS [None]
